FAERS Safety Report 12603126 (Version 2)
Quarter: 2016Q3

REPORT INFORMATION
  Report Type: Report from Study
  Country: MX (occurrence: MX)
  Receive Date: 20160728
  Receipt Date: 20160825
  Transmission Date: 20161109
  Serious: Yes (Other)
  Sender: FDA-Public Use
  Company Number: PHHY2016MX102017

PATIENT
  Age: 61 Year
  Sex: Female

DRUGS (14)
  1. FISH OIL [Concomitant]
     Active Substance: FISH OIL
     Indication: BLOOD TRIGLYCERIDES INCREASED
  2. TREMEPEN [Concomitant]
     Indication: DIABETIC NEUROPATHY
     Dosage: 2 DF, QD
     Route: 048
     Dates: start: 201603
  3. NEURONTIN [Concomitant]
     Active Substance: GABAPENTIN
     Indication: DIABETIC NEUROPATHY
     Dosage: 1 DF, QD
     Route: 048
     Dates: start: 201607
  4. VIT E//TOCOPHEROL [Concomitant]
     Indication: BLOOD CHOLESTEROL INCREASED
     Dosage: 1 DF, QD
     Route: 048
     Dates: start: 2016
  5. VIT E//TOCOPHEROL [Concomitant]
     Indication: BLOOD TRIGLYCERIDES INCREASED
     Dosage: 1 DF, QD
     Route: 048
     Dates: start: 201602
  6. LINSEED OIL [Concomitant]
     Active Substance: LINSEED OIL
     Indication: BLOOD TRIGLYCERIDES INCREASED
  7. SERMION [Concomitant]
     Active Substance: NICERGOLINE
     Indication: PRODUCT USED FOR UNKNOWN INDICATION
     Dosage: UNK
     Route: 065
  8. FISH OIL [Concomitant]
     Active Substance: FISH OIL
     Indication: BLOOD CHOLESTEROL INCREASED
     Dosage: 1 DF, QD
     Route: 048
     Dates: start: 2016
  9. EXFORGE HCT [Suspect]
     Active Substance: AMLODIPINE BESYLATE\HYDROCHLOROTHIAZIDE\VALSARTAN
     Indication: HYPERTENSION
     Dosage: 1 DF (AMLODIPINE 5 MG, HYDROCHLOROTHIAZIDE 12.5 MG, VALSARTAN 160 MG), QD
     Route: 048
     Dates: start: 201603
  10. BORAGE OIL [Concomitant]
     Active Substance: BORAGE OIL
     Indication: BLOOD TRIGLYCERIDES INCREASED
  11. LINSEED OIL [Concomitant]
     Active Substance: LINSEED OIL
     Indication: BLOOD CHOLESTEROL INCREASED
     Dosage: 1 DF, QD
     Route: 048
     Dates: start: 2016
  12. TENORMIN [Concomitant]
     Active Substance: ATENOLOL
     Indication: HYPERTENSION
     Dosage: 2 DF, QD
     Route: 048
     Dates: start: 201603
  13. OMACOR [Concomitant]
     Active Substance: OMEGA-3-ACID ETHYL ESTERS
     Indication: BLOOD CHOLESTEROL INCREASED
     Dosage: 1 DF, QD
     Route: 048
     Dates: start: 201602
  14. BORAGE OIL [Concomitant]
     Active Substance: BORAGE OIL
     Indication: BLOOD CHOLESTEROL INCREASED
     Dosage: 1 DF, QD
     Route: 048
     Dates: start: 2016

REACTIONS (1)
  - Cataract [Not Recovered/Not Resolved]

NARRATIVE: CASE EVENT DATE: 201605
